FAERS Safety Report 8414140-3 (Version None)
Quarter: 2012Q2

REPORT INFORMATION
  Report Type: 
  Country: None (occurrence: None)
  Receive Date: 20120605
  Receipt Date: 20120529
  Transmission Date: 20120825
  Serious: Yes (Hospitalization, Other)
  Sender: FDA-Public Use
  Company Number: PHHY2011DE29579

PATIENT
  Sex: Male
  Weight: 75 kg

DRUGS (24)
  1. DOXAZOSIN [Concomitant]
     Indication: HYPERTENSION
     Dosage: 4 MG, BID
     Dates: start: 20100601
  2. ASPIRIN [Concomitant]
     Indication: CARDIOVASCULAR DISORDER
     Dosage: 100 MG, DAILY
     Dates: start: 20100601
  3. OFLOXACIN [Concomitant]
     Dates: start: 20100522, end: 20100601
  4. CORVATON - SLOW RELEASE [Concomitant]
     Dates: start: 20101014
  5. AMLODIPINE [Concomitant]
     Indication: HYPERTENSION
     Dosage: 5 MG, DAY
  6. FUROSEMIDE [Concomitant]
     Indication: CARDIAC FAILURE
     Dosage: 40 MG, DAY
     Dates: start: 20101001
  7. TASIGNA [Suspect]
     Dosage: 200 MG, BID
     Route: 048
     Dates: start: 20101024, end: 20101113
  8. TASIGNA [Suspect]
     Dosage: 200 MG, BID
     Route: 048
     Dates: start: 20111018
  9. CYANOCOBALAMIN [Concomitant]
     Dosage: 1000 MG EVERY 3 MONTHS
     Dates: start: 20071114
  10. PANTOPRAZOLE [Concomitant]
     Indication: PROPHYLAXIS
     Dosage: 40 MG/DAY
  11. TASIGNA [Suspect]
     Dosage: 400 MG, BID
     Route: 048
     Dates: start: 20100101, end: 20101018
  12. TASIGNA [Suspect]
     Dates: start: 20101214, end: 20110218
  13. ALLOPURINOL [Concomitant]
     Dates: start: 20041201, end: 20101101
  14. CIPROFLOXACIN [Concomitant]
     Dates: start: 20100521, end: 20100611
  15. CANDESARTAN CILEXETIL [Concomitant]
     Indication: HYPERTENSION
  16. IMODIUM [Concomitant]
     Dates: start: 20080924
  17. SIMVASTATIN [Concomitant]
     Indication: CARDIOVASCULAR DISORDER
     Dosage: 40 MG,DAY
  18. TASIGNA [Suspect]
     Dosage: 300 MG, BID
     Route: 048
     Dates: start: 20110406, end: 20111017
  19. EPOGEN [Concomitant]
     Dosage: 10000 IU EVERY WEEK
     Dates: start: 20070913
  20. TORSEMIDE [Concomitant]
     Dates: start: 20101116
  21. METOPROLOL SUCCINATE [Concomitant]
     Indication: CARDIOVASCULAR DISORDER
     Dates: start: 20041201, end: 20101013
  22. CARVEDILOL [Concomitant]
     Indication: CARDIOVASCULAR DISORDER
     Dates: start: 20101014
  23. TASIGNA [Suspect]
     Indication: CHRONIC MYELOID LEUKAEMIA
     Dosage: 800 MG, DAILY
     Route: 048
     Dates: start: 20091121, end: 20101203
  24. DIGIMERCK [Concomitant]
     Indication: ATRIAL FIBRILLATION
     Dates: start: 20101116

REACTIONS (19)
  - PLEURAL EFFUSION [None]
  - CHEST PAIN [None]
  - NAUSEA [None]
  - GENERAL PHYSICAL HEALTH DETERIORATION [None]
  - TACHYARRHYTHMIA [None]
  - ABDOMINAL DISCOMFORT [None]
  - FATIGUE [None]
  - BLOOD LACTATE DEHYDROGENASE INCREASED [None]
  - INFLAMMATION [None]
  - BLOOD CALCIUM DECREASED [None]
  - PERICARDIAL EFFUSION [None]
  - C-REACTIVE PROTEIN INCREASED [None]
  - BLOOD ALKALINE PHOSPHATASE INCREASED [None]
  - ELECTROCARDIOGRAM QT PROLONGED [None]
  - DIARRHOEA [None]
  - ASTHENIA [None]
  - ATRIAL FIBRILLATION [None]
  - PULMONARY CONGESTION [None]
  - DYSPNOEA [None]
